FAERS Safety Report 7336332-7 (Version None)
Quarter: 2011Q1

REPORT INFORMATION
  Report Type: 
  Country: None (occurrence: None)
  Receive Date: 20110307
  Receipt Date: 20110225
  Transmission Date: 20110831
  Serious: Yes (Hospitalization)
  Sender: FDA-Public Use
  Company Number: FR-PFIZER INC-2010031495

PATIENT
  Age: 89 Year
  Sex: Female

DRUGS (14)
  1. DAFALGAN [Suspect]
     Dosage: UNK
     Route: 048
     Dates: end: 20100217
  2. TRIATEC [Suspect]
     Dosage: UNK
     Route: 048
     Dates: start: 20100209, end: 20100217
  3. ALPRAZOLAM [Suspect]
     Dosage: UNK
     Route: 048
     Dates: end: 20100217
  4. INIPOMP [Suspect]
     Dosage: UNK
     Route: 048
     Dates: end: 20100217
  5. KARDEGIC [Suspect]
     Dosage: UNK
     Route: 048
     Dates: end: 20100217
  6. EFFEXOR [Suspect]
     Dosage: UNK
     Route: 048
     Dates: end: 20100217
  7. DIAMOX [Concomitant]
     Dosage: UNK
     Dates: end: 20100201
  8. LASIX [Suspect]
     Dosage: UNK
     Route: 048
     Dates: start: 20100209, end: 20100217
  9. DUPHALAC [Suspect]
     Dosage: UNK
     Route: 048
  10. ADANCOR [Concomitant]
     Dosage: UNK
     Dates: end: 20100201
  11. XALATAN [Suspect]
     Dosage: UNK
     Route: 047
  12. DILTIAZEM HCL [Suspect]
     Dosage: UNK
     Route: 048
     Dates: start: 20100209, end: 20100217
  13. LANTUS [Suspect]
     Dosage: UNK
     Route: 048
  14. CELLUVISC [Suspect]
     Dosage: UNK
     Route: 047

REACTIONS (2)
  - PRURITUS [None]
  - THROMBOCYTOPENIA [None]
